FAERS Safety Report 7417097-7 (Version None)
Quarter: 2011Q2

REPORT INFORMATION
  Report Type: 
  Country: None (occurrence: None)
  Receive Date: 20110412
  Receipt Date: 20110412
  Transmission Date: 20111010
  Serious: Yes (Other)
  Sender: FDA-Public Use
  Company Number: None

PATIENT
  Age: 59 Year
  Sex: Female
  Weight: 74.8435 kg

DRUGS (2)
  1. PLAVIX [Suspect]
     Indication: CEREBROVASCULAR ACCIDENT
     Dosage: 75 MG/DAILY
  2. ZOCOR [Suspect]
     Indication: CEREBROVASCULAR ACCIDENT
     Dosage: 40MG/DAILY

REACTIONS (4)
  - BURNING SENSATION [None]
  - URTICARIA [None]
  - COUGH [None]
  - PRURITUS [None]
